FAERS Safety Report 8809601 (Version 2)
Quarter: 2012Q4

REPORT INFORMATION
  Report Type: 
  Country: PL (occurrence: PL)
  Receive Date: 20120926
  Receipt Date: 20121105
  Transmission Date: 20130627
  Serious: Yes (Other)
  Sender: FDA-Public Use
  Company Number: PHHY2012PL082556

PATIENT
  Age: 62 Year
  Sex: Male

DRUGS (2)
  1. PREDNISONE [Suspect]
     Dosage: 0.5 mg/bw
  2. DEXAMETHASONE [Suspect]
     Dosage: 40 mg, daily
     Dates: start: 200509

REACTIONS (4)
  - Adams-Stokes syndrome [Unknown]
  - Bradycardia [Unknown]
  - Hyperglycaemia [Unknown]
  - Drug ineffective [Unknown]
